FAERS Safety Report 23426872 (Version 1)
Quarter: 2024Q1

REPORT INFORMATION
  Report Type: Spontaneous
  Country: AU (occurrence: AU)
  Receive Date: 20240122
  Receipt Date: 20240122
  Transmission Date: 20240409
  Serious: Yes (Other)
  Sender: FDA-Public Use
  Company Number: AU-ELI_LILLY_AND_COMPANY-AU202312012086

PATIENT
  Sex: Female

DRUGS (2)
  1. OLANZAPINE [Suspect]
     Active Substance: OLANZAPINE
     Indication: Bipolar II disorder
  2. TIRZEPATIDE [Concomitant]
     Active Substance: TIRZEPATIDE

REACTIONS (4)
  - Alcoholism [Recovered/Resolved]
  - Increased appetite [Recovered/Resolved]
  - Weight increased [Unknown]
  - Blood glucose increased [Unknown]
